FAERS Safety Report 8303707-9 (Version None)
Quarter: 2012Q2

REPORT INFORMATION
  Report Type: 
  Country: None (occurrence: None)
  Receive Date: 20120423
  Receipt Date: 20120413
  Transmission Date: 20120825
  Serious: Yes (Hospitalization)
  Sender: FDA-Public Use
  Company Number: FR-PFIZER INC-FRWYE224228MAR07

PATIENT
  Age: 65 Year
  Sex: Male
  Weight: 61 kg

DRUGS (24)
  1. IRINOTECAN HCL [Suspect]
     Dosage: 150.0 MG, 1X/DAY
     Route: 042
     Dates: start: 20070215, end: 20070215
  2. LEVOLEUCOVORIN CALCIUM [Suspect]
     Dosage: 167.0 MG, 1X/DAY
     Route: 042
     Dates: start: 20061123, end: 20061124
  3. FLUOROURACIL [Suspect]
     Indication: COLON CANCER METASTATIC
     Dosage: 1680.0 MG, 1X/DAY
     Route: 042
     Dates: start: 20061109, end: 20061110
  4. MIXTARD HUMAN 70/30 [Concomitant]
     Route: 065
  5. FLUOROURACIL [Suspect]
     Dosage: 1670.0 MG, 1X/DAY
     Route: 042
     Dates: start: 20061214, end: 20061215
  6. AVASTIN [Suspect]
     Dosage: 300.0 MG, 1X/DAY
     Route: 042
     Dates: start: 20070109, end: 20070109
  7. PROGRAF [Concomitant]
     Route: 065
  8. FLUOROURACIL [Suspect]
     Dosage: 1670.0 MG, 1X/DAY
     Route: 042
     Dates: start: 20070109, end: 20070110
  9. MORPHINE SULFATE [Concomitant]
     Route: 065
  10. IRINOTECAN HCL [Suspect]
     Dosage: 300.0 MG, 1X/DAY
     Route: 042
     Dates: start: 20061214, end: 20061214
  11. LEVOLEUCOVORIN CALCIUM [Suspect]
     Indication: COLON CANCER METASTATIC
     Dosage: 168.0 MG, 1X/DAY
     Route: 042
     Dates: start: 20061109, end: 20061110
  12. LEVOLEUCOVORIN CALCIUM [Suspect]
     Dosage: 167.0 MG, 1X/DAY
     Route: 042
     Dates: start: 20061214, end: 20061215
  13. IRINOTECAN HCL [Suspect]
     Dosage: 300.0 MG, 1X/DAY
     Route: 042
     Dates: start: 20061123, end: 20061123
  14. IRINOTECAN HCL [Suspect]
     Dosage: 300.0 MG, 1X/DAY
     Route: 042
     Dates: start: 20070109, end: 20070109
  15. LEVOLEUCOVORIN CALCIUM [Suspect]
     Dosage: 167.0 MG, 1X/DAY
     Route: 042
     Dates: start: 20070109, end: 20070110
  16. AVASTIN [Suspect]
     Indication: COLON CANCER METASTATIC
     Dosage: 305.0 MG, 1X/DAY
     Route: 042
     Dates: start: 20061109, end: 20061109
  17. AVASTIN [Suspect]
     Dosage: 300.0 MG, 1X/DAY
     Route: 042
     Dates: start: 20061214, end: 20061214
  18. AVASTIN [Suspect]
     Dosage: 150.0 MG, 1X/DAY
     Route: 042
     Dates: start: 20070215, end: 20070215
  19. IRINOTECAN HCL [Suspect]
     Indication: COLON CANCER METASTATIC
     Dosage: 302.0 MG, 1X/DAY
     Route: 042
     Dates: start: 20061109, end: 20061109
  20. LEVOLEUCOVORIN CALCIUM [Suspect]
     Dosage: 83.5 MG, 1X/DAY
     Route: 042
     Dates: start: 20070215, end: 20070216
  21. FLUOROURACIL [Suspect]
     Dosage: 1670.0 MG, 1X/DAY
     Route: 042
     Dates: start: 20061123, end: 20061124
  22. AVASTIN [Suspect]
     Dosage: 300.0 MG, 1X/DAY
     Route: 042
     Dates: start: 20061123, end: 20061123
  23. FLUOROURACIL [Suspect]
     Dosage: 835.0 MG, 1X/DAY
     Route: 042
     Dates: start: 20070215, end: 20070216
  24. DURAGESIC-100 [Concomitant]
     Route: 065

REACTIONS (12)
  - NERVOUS SYSTEM DISORDER [None]
  - HYPONATRAEMIA [None]
  - ACUTE PRERENAL FAILURE [None]
  - ABDOMINAL PAIN [None]
  - DIARRHOEA [None]
  - DISORIENTATION [None]
  - HYPOKALAEMIA [None]
  - WEIGHT DECREASED [None]
  - VOMITING [None]
  - ENCEPHALOPATHY [None]
  - NEUTROPENIA [None]
  - DEHYDRATION [None]
